FAERS Safety Report 12211703 (Version 1)
Quarter: 2016Q1

REPORT INFORMATION
  Report Type: Spontaneous
  Country: ES (occurrence: ES)
  Receive Date: 20160325
  Receipt Date: 20160325
  Transmission Date: 20160526
  Serious: Yes (Other)
  Sender: FDA-Public Use
  Company Number: ES-ARBOR PHARMACEUTICALS, LLC-ES-2016ARB000205

PATIENT
  Age: 9 Year
  Sex: Female

DRUGS (1)
  1. LAMOTRIGINE. [Suspect]
     Active Substance: LAMOTRIGINE
     Indication: PARTIAL SEIZURES
     Dosage: UNK

REACTIONS (2)
  - Attention deficit/hyperactivity disorder [Unknown]
  - Electroencephalogram abnormal [Recovered/Resolved]
